FAERS Safety Report 22825230 (Version 8)
Quarter: 2023Q4

REPORT INFORMATION
  Report Type: Report from Study
  Country: MX (occurrence: MX)
  Receive Date: 20230816
  Receipt Date: 20231214
  Transmission Date: 20240110
  Serious: Yes (Other)
  Sender: FDA-Public Use
  Company Number: MX-002147023-NVSC2022MX237207

PATIENT

DRUGS (7)
  1. DICLOFENAC [Suspect]
     Active Substance: DICLOFENAC
     Indication: Product used for unknown indication
     Dosage: UNK
     Route: 065
  2. GILENYA [Suspect]
     Active Substance: FINGOLIMOD HYDROCHLORIDE
     Indication: Multiple sclerosis
     Dosage: 0.5 MG, QD, BY MOUTH, IN THE MORNINGS, AFTER BREAKFAST
     Route: 048
     Dates: start: 20220912
  3. GILENYA [Suspect]
     Active Substance: FINGOLIMOD HYDROCHLORIDE
     Dosage: 0.5 MG, QD
     Route: 048
     Dates: start: 20220915
  4. GILENYA [Suspect]
     Active Substance: FINGOLIMOD HYDROCHLORIDE
     Dosage: 0.5 MG, QOD
     Route: 050
  5. GILENYA [Suspect]
     Active Substance: FINGOLIMOD HYDROCHLORIDE
     Dosage: 0.5 MG, QD, (BY MOUTH)
     Route: 048
  6. IODINE [Suspect]
     Active Substance: IODINE
     Indication: Magnetic resonance imaging
     Dosage: UNK
     Route: 065
  7. MAGNESIUM [Concomitant]
     Active Substance: MAGNESIUM
     Indication: Product used for unknown indication
     Dosage: UNK
     Route: 065

REACTIONS (37)
  - Gastrointestinal oedema [Not Recovered/Not Resolved]
  - Multiple sclerosis relapse [Unknown]
  - Ill-defined disorder [Unknown]
  - Anxiety [Not Recovered/Not Resolved]
  - Gingival bleeding [Not Recovered/Not Resolved]
  - Oral mucosal blistering [Not Recovered/Not Resolved]
  - Heart rate abnormal [Not Recovered/Not Resolved]
  - Constipation [Not Recovered/Not Resolved]
  - Dysphagia [Not Recovered/Not Resolved]
  - Pyrexia [Not Recovered/Not Resolved]
  - Vomiting [Not Recovered/Not Resolved]
  - Depression [Unknown]
  - Oedema peripheral [Unknown]
  - Influenza [Not Recovered/Not Resolved]
  - Fluid retention [Unknown]
  - Gait disturbance [Not Recovered/Not Resolved]
  - Headache [Unknown]
  - Herpes virus infection [Unknown]
  - Gastrointestinal inflammation [Not Recovered/Not Resolved]
  - Decreased immune responsiveness [Unknown]
  - Migraine [Not Recovered/Not Resolved]
  - Nausea [Not Recovered/Not Resolved]
  - Hypoaesthesia [Not Recovered/Not Resolved]
  - Pain [Not Recovered/Not Resolved]
  - Pain in extremity [Not Recovered/Not Resolved]
  - Arthralgia [Recovered/Resolved]
  - Hypokinesia [Not Recovered/Not Resolved]
  - Dyspepsia [Not Recovered/Not Resolved]
  - Malaise [Unknown]
  - Crying [Recovered/Resolved]
  - Dyspnoea [Unknown]
  - Mood altered [Unknown]
  - Somnolence [Not Recovered/Not Resolved]
  - Stress [Unknown]
  - Fatigue [Not Recovered/Not Resolved]
  - Oral disorder [Not Recovered/Not Resolved]
  - Inappropriate schedule of product administration [Not Recovered/Not Resolved]

NARRATIVE: CASE EVENT DATE: 20220901
